FAERS Safety Report 18282442 (Version 1)
Quarter: 2020Q3

REPORT INFORMATION
  Report Type: Spontaneous
  Country: US (occurrence: US)
  Receive Date: 20200917
  Receipt Date: 20200917
  Transmission Date: 20201103
  Serious: Yes (Hospitalization)
  Sender: FDA-Public Use
  Company Number: None

PATIENT
  Age: 39 Year
  Sex: Female

DRUGS (12)
  1. MAGNESIUM [Concomitant]
     Active Substance: MAGNESIUM
  2. ZOFRAN [Concomitant]
     Active Substance: ONDANSETRON HYDROCHLORIDE
  3. TYSABRI [Concomitant]
     Active Substance: NATALIZUMAB
  4. SERTRALINE [Concomitant]
     Active Substance: SERTRALINE HYDROCHLORIDE
  5. DALFAMPRIDINE 10MG ER TAB [Suspect]
     Active Substance: DALFAMPRIDINE
     Indication: MULTIPLE SCLEROSIS
     Route: 048
     Dates: start: 20180102
  6. MODAFINIL. [Concomitant]
     Active Substance: MODAFINIL
  7. OCREVUS [Concomitant]
     Active Substance: OCRELIZUMAB
  8. YAZ [Concomitant]
     Active Substance: DROSPIRENONE\ETHINYL ESTRADIOL
  9. ALPHA LIPOIC [Concomitant]
  10. MELATONIN [Concomitant]
     Active Substance: MELATONIN
  11. ZOLOFT [Concomitant]
     Active Substance: SERTRALINE HYDROCHLORIDE
  12. ZYTREC ALLGY [Concomitant]

REACTIONS (1)
  - Metabolic surgery [None]

NARRATIVE: CASE EVENT DATE: 201911
